FAERS Safety Report 6140810-6 (Version None)
Quarter: 2009Q2

REPORT INFORMATION
  Report Type: 
  Country: None (occurrence: None)
  Receive Date: 20090402
  Receipt Date: 20081209
  Transmission Date: 20091009
  Serious: Yes (Other)
  Sender: FDA-Public Use
  Company Number: US-PFIZER INC-2008156539

PATIENT
  Sex: Male
  Weight: 82.993 kg

DRUGS (3)
  1. CHANTIX [Suspect]
     Indication: SMOKING CESSATION THERAPY
     Dosage: UNK
     Dates: start: 20081129
  2. ATRIPLA [Concomitant]
     Indication: HIV TEST POSITIVE
     Dosage: UNK
  3. EXCEDRIN (MIGRAINE) [Concomitant]
     Indication: HEADACHE
     Dosage: UNK

REACTIONS (1)
  - VIOLENCE-RELATED SYMPTOM [None]
